FAERS Safety Report 11992449 (Version 2)
Quarter: 2024Q3

REPORT INFORMATION
  Report Type: Spontaneous
  Country: US (occurrence: US)
  Receive Date: 20160203
  Receipt Date: 20240814
  Transmission Date: 20241016
  Serious: Yes (Other)
  Sender: CSL BEHRING
  Company Number: US-BEH-2016058205

PATIENT
  Sex: Female
  Weight: 52.164 kg

DRUGS (8)
  1. ZEMAIRA [Suspect]
     Active Substance: .ALPHA.1-PROTEINASE INHIBITOR HUMAN
     Dosage: 1048 MG/VL
     Route: 042
     Dates: start: 20120521
  2. DIPHENHYDRAMINE [Concomitant]
     Active Substance: DIPHENHYDRAMINE
  3. HEPARIN [Concomitant]
     Active Substance: HEPARIN SODIUM
  4. SODIUM CHLORIDE [Concomitant]
     Active Substance: SODIUM CHLORIDE
  5. SODIUM CHLORIDE [Concomitant]
     Active Substance: SODIUM CHLORIDE
  6. EPIPEN [Concomitant]
     Active Substance: EPINEPHRINE
  7. CEPHALEXIN DH [Concomitant]
  8. VENLAFAXINE [Concomitant]
     Active Substance: VENLAFAXINE HYDROCHLORIDE

REACTIONS (2)
  - Device related infection [Unknown]
  - Off label use [Unknown]
